FAERS Safety Report 16137450 (Version 1)
Quarter: 2019Q2

REPORT INFORMATION
  Report Type: Spontaneous
  Country: IT (occurrence: IT)
  Receive Date: 20190401
  Receipt Date: 20190401
  Transmission Date: 20190711
  Serious: Yes (Other)
  Sender: FDA-Public Use
  Company Number: IT-AUROBINDO-AUR-APL-2017-37350

PATIENT

DRUGS (5)
  1. AVASTIN [Suspect]
     Active Substance: BEVACIZUMAB
     Indication: PRODUCT USED FOR UNKNOWN INDICATION
     Dosage: 1 X 100 MG VIAL OF CONCENTRATE FOR SOLUTION FOR INFUSION ()
     Route: 065
     Dates: start: 20170524, end: 20170524
  2. AVASTIN [Suspect]
     Active Substance: BEVACIZUMAB
     Indication: PRODUCT USED FOR UNKNOWN INDICATION
     Dosage: 1 X 100 MG VIAL OF CONCENTRATE FOR SOLUTION FOR INFUSION
     Route: 065
     Dates: start: 20170524, end: 20170524
  3. CARBOPLATIN. [Suspect]
     Active Substance: CARBOPLATIN
     Dosage: ()
     Route: 065
  4. CARBOPLATIN. [Suspect]
     Active Substance: CARBOPLATIN
     Indication: PRODUCT USED FOR UNKNOWN INDICATION
     Dosage: ()
     Route: 065
     Dates: start: 20170524, end: 20170524
  5. CARBOPLATIN. [Suspect]
     Active Substance: CARBOPLATIN
     Dosage: ()
     Route: 065

REACTIONS (3)
  - Pruritus generalised [Recovering/Resolving]
  - Pruritus [Recovering/Resolving]
  - Erythema [Recovering/Resolving]

NARRATIVE: CASE EVENT DATE: 20170528
